FAERS Safety Report 15263929 (Version 1)
Quarter: 2018Q3

REPORT INFORMATION
  Report Type: Spontaneous
  Country: US (occurrence: US)
  Receive Date: 20180720
  Receipt Date: 20180720
  Transmission Date: 20181010
  Serious: Yes (Hospitalization, Other)
  Sender: FDA-Public Use
  Company Number: None

PATIENT
  Age: 24 Year
  Sex: Male
  Weight: 74.25 kg

DRUGS (1)
  1. TRINTELLIX [Suspect]
     Active Substance: VORTIOXETINE HYDROBROMIDE
     Indication: ANXIETY
     Dosage: ?          QUANTITY:1 TABLET(S);?
     Route: 048
     Dates: start: 20180401, end: 20180709

REACTIONS (9)
  - Dehydration [None]
  - Vomiting [None]
  - Duodenitis [None]
  - Nausea [None]
  - Therapy cessation [None]
  - Gastrointestinal inflammation [None]
  - Gastroenteritis [None]
  - Diarrhoea [None]
  - Intestinal villi atrophy [None]

NARRATIVE: CASE EVENT DATE: 20180705
